FAERS Safety Report 9450194 (Version 1)
Quarter: 2013Q3

REPORT INFORMATION
  Report Type: Spontaneous
  Country: AU (occurrence: AU)
  Receive Date: 20130809
  Receipt Date: 20130809
  Transmission Date: 20140515
  Serious: Yes (Death, Other)
  Sender: FDA-Public Use
  Company Number: AU-BAYER-2013-094789

PATIENT
  Sex: Male

DRUGS (1)
  1. NEXAVAR 200 MG [Suspect]
     Indication: RENAL CELL CARCINOMA
     Dosage: UNK

REACTIONS (3)
  - Death [Fatal]
  - Renal cell carcinoma [None]
  - Interstitial lung disease [None]
